FAERS Safety Report 8407995-X (Version None)
Quarter: 2012Q2

REPORT INFORMATION
  Report Type: 
  Country: None (occurrence: None)
  Receive Date: 20120604
  Receipt Date: 20120601
  Transmission Date: 20120825
  Serious: Yes (Hospitalization)
  Sender: FDA-Public Use
  Company Number: DE-MERCK-1206DEU00001

PATIENT
  Age: 72 Year
  Sex: Female

DRUGS (7)
  1. BISOPROLOL [Concomitant]
     Route: 065
  2. OMEPRAZOLE [Concomitant]
     Route: 065
  3. AMLODIPINE [Concomitant]
     Route: 065
     Dates: end: 20120528
  4. VYTORIN [Suspect]
     Route: 048
  5. INSULIN [Concomitant]
     Route: 065
  6. MOLSIDOMINE [Concomitant]
     Route: 065
  7. METFORMIN [Concomitant]
     Route: 065

REACTIONS (5)
  - LOSS OF CONSCIOUSNESS [None]
  - MYALGIA [None]
  - NECK PAIN [None]
  - ARTHRALGIA [None]
  - RENAL PAIN [None]
